FAERS Safety Report 8188902 (Version 3)
Quarter: 2018Q4

REPORT INFORMATION
  Report Type: Report from Study
  Country: JP (occurrence: JP)
  Receive Date: 20111019
  Receipt Date: 20181123
  Transmission Date: 20190205
  Serious: Yes (Death, Hospitalization)
  Sender: FDA-Public Use
  Company Number: PHHY2011JP07154

PATIENT
  Age: 81 Year
  Sex: Male
  Weight: 48.3 kg

DRUGS (20)
  1. URINORM [Concomitant]
     Active Substance: BENZBROMARONE
     Indication: PRODUCT USED FOR UNKNOWN INDICATION
     Dosage: 50 MG, UNK
     Route: 065
     Dates: start: 2005, end: 20091121
  2. EXJADE [Suspect]
     Active Substance: DEFERASIROX
     Dosage: 500 MG, QD
     Route: 048
     Dates: start: 20081001, end: 20081014
  3. EXJADE [Suspect]
     Active Substance: DEFERASIROX
     Dosage: 125 MG, QD
     Route: 048
     Dates: start: 20090612, end: 20090709
  4. HOKUNALIN [Concomitant]
     Active Substance: TULOBUTEROL
     Indication: PRODUCT USED FOR UNKNOWN INDICATION
     Dosage: 2 MG, UNK
     Route: 065
     Dates: start: 20090223, end: 20091121
  5. NEUTROGIN [Concomitant]
     Active Substance: LENOGRASTIM
     Indication: PRODUCT USED FOR UNKNOWN INDICATION
     Dosage: 250 UG, UNK
     Route: 065
     Dates: start: 20090223, end: 20091121
  6. ALFAROL [Concomitant]
     Active Substance: ALFACALCIDOL
     Indication: PRODUCT USED FOR UNKNOWN INDICATION
     Dosage: 0.25 MG, UNK
     Route: 048
     Dates: start: 2005
  7. ALFAROL [Concomitant]
     Active Substance: ALFACALCIDOL
     Dosage: 0.5 MG, UNK
     Route: 048
     Dates: end: 20091121
  8. EXJADE [Suspect]
     Active Substance: DEFERASIROX
     Dosage: 500 MG DAILY
     Route: 048
     Dates: start: 20081001, end: 20081014
  9. EXJADE [Suspect]
     Active Substance: DEFERASIROX
     Dosage: 625 MG DAILY
     Route: 048
     Dates: start: 20081015, end: 20081112
  10. EXJADE [Suspect]
     Active Substance: DEFERASIROX
     Dosage: 625 MG, QD
     Route: 048
     Dates: start: 20081015, end: 20081112
  11. PROMAC [Concomitant]
     Active Substance: NITROFURANTOIN
     Indication: PRODUCT USED FOR UNKNOWN INDICATION
     Dosage: 150 MG, UNK
     Dates: start: 20090223, end: 20091121
  12. EXJADE [Suspect]
     Active Substance: DEFERASIROX
     Indication: IRON OVERLOAD
     Dosage: 1000 MG DAILY
     Route: 048
     Dates: start: 20080822, end: 20080930
  13. GLAKAY [Concomitant]
     Active Substance: MENATETRENONE
     Indication: PRODUCT USED FOR UNKNOWN INDICATION
     Dosage: 45 MG, UNK
     Route: 048
     Dates: start: 2005, end: 20091121
  14. EXJADE [Suspect]
     Active Substance: DEFERASIROX
     Dosage: 125 MG DAILY
     Route: 048
     Dates: start: 20090612, end: 20090709
  15. EXJADE [Suspect]
     Active Substance: DEFERASIROX
     Dosage: 250 MG DAILY
     Route: 048
     Dates: start: 20090710, end: 20091121
  16. PARIET [Concomitant]
     Active Substance: RABEPRAZOLE SODIUM
     Indication: PRODUCT USED FOR UNKNOWN INDICATION
     Dosage: 10 MG, UNK
     Route: 065
     Dates: start: 2005, end: 20091121
  17. EXJADE [Suspect]
     Active Substance: DEFERASIROX
     Dosage: 1000 MG, QD
     Route: 048
     Dates: start: 20080822, end: 20080930
  18. DIART [Concomitant]
     Active Substance: AZOSEMIDE
     Indication: PRODUCT USED FOR UNKNOWN INDICATION
     Dosage: 60 MG, UNK
     Route: 065
     Dates: start: 2005, end: 20091121
  19. EPOGIN [Concomitant]
     Active Substance: ERYTHROPOIETIN
     Indication: PRODUCT USED FOR UNKNOWN INDICATION
     Dosage: 6000 IU, UNK
     Route: 065
     Dates: start: 20090223, end: 20091121
  20. EXJADE [Suspect]
     Active Substance: DEFERASIROX
     Dosage: 250 MG, QD
     Route: 048
     Dates: start: 20090710, end: 20091121

REACTIONS (10)
  - Abdominal pain upper [Fatal]
  - Renal impairment [Recovered/Resolved]
  - Colitis ischaemic [Fatal]
  - Septic shock [Fatal]
  - Platelet count decreased [Fatal]
  - Renal impairment [Recovering/Resolving]
  - Renal impairment [Recovering/Resolving]
  - Renal impairment [Not Recovered/Not Resolved]
  - Sepsis [Fatal]
  - Faeces discoloured [Unknown]

NARRATIVE: CASE EVENT DATE: 20080822
